FAERS Safety Report 4883233-X (Version None)
Quarter: 2006Q1

REPORT INFORMATION
  Report Type: 
  Country: None (occurrence: None)
  Receive Date: 20060117
  Receipt Date: 20060117
  Transmission Date: 20060701
  Serious: Yes (Hospitalization)
  Sender: FDA-Public Use
  Company Number: None

PATIENT
  Age: 25 Year
  Sex: Male
  Weight: 81.6 kg

DRUGS (1)
  1. NYQUIL COLD/FLU RELIEF ALCOHOL 10%, FLAVOR UNKNOWN (ETHANOL 10%, DEXTR [Suspect]
     Dosage: 150 ML, ORAL
     Route: 048

REACTIONS (1)
  - UNRESPONSIVE TO VERBAL STIMULI [None]
